FAERS Safety Report 13500011 (Version 2)
Quarter: 2017Q2

REPORT INFORMATION
  Report Type: Spontaneous
  Country: US (occurrence: US)
  Receive Date: 20170501
  Receipt Date: 20170523
  Transmission Date: 20170830
  Serious: Yes (Life-Threatening, Hospitalization, Other)
  Sender: FDA-Public Use
  Company Number: US-SEBELA IRELAND LIMITED-2017SEB00260

PATIENT
  Sex: Female
  Weight: 83.72 kg

DRUGS (10)
  1. UNSPECIFIED POTASSIUM [Suspect]
     Active Substance: POTASSIUM
     Indication: BLOOD POTASSIUM DECREASED
  2. VITAMIN D [Concomitant]
     Active Substance: CHOLECALCIFEROL
     Dosage: UNK, AS NEEDED
  3. PEXEVA [Suspect]
     Active Substance: PAROXETINE MESYLATE
     Indication: DEPRESSION
     Dosage: UNK, 1X/DAY
     Route: 048
     Dates: start: 2007, end: 2012
  4. CALCIUM SUPPLEMENTS [Concomitant]
     Active Substance: CALCIUM
  5. VITAMINS [Concomitant]
     Active Substance: VITAMINS
  6. PAXIL [Suspect]
     Active Substance: PAROXETINE HYDROCHLORIDE
  7. BABY ASPIRIN [Concomitant]
     Active Substance: ASPIRIN
  8. UNKNOWN BLOOD PRESSURE MEDICATION [Concomitant]
     Active Substance: UNSPECIFIED INGREDIENT
  9. PEXEVA [Suspect]
     Active Substance: PAROXETINE MESYLATE
     Dosage: UNK, 1X/DAY
     Route: 048
     Dates: start: 2012
  10. UNSPECIFIED CHEMOTHERAPY [Suspect]
     Active Substance: UNSPECIFIED INGREDIENT
     Indication: BREAST CANCER
     Dosage: UNK
     Dates: start: 201303

REACTIONS (17)
  - Breast cancer [Recovered/Resolved]
  - Anaemia [Recovered/Resolved]
  - Colon injury [Unknown]
  - Gastric disorder [Unknown]
  - Blood potassium decreased [Unknown]
  - Leukopenia [Unknown]
  - Hypertension [Unknown]
  - Gallbladder operation [Recovered/Resolved]
  - Weight increased [None]
  - Abdominal discomfort [Recovered/Resolved]
  - Rheumatoid arthritis [Not Recovered/Not Resolved]
  - Infection [Unknown]
  - Neuropathy peripheral [Not Recovered/Not Resolved]
  - Trigger finger [Recovered/Resolved]
  - Hypotension [Unknown]
  - Alopecia [Recovered/Resolved]
  - Hot flush [Not Recovered/Not Resolved]

NARRATIVE: CASE EVENT DATE: 2010
